FAERS Safety Report 14512112 (Version 2)
Quarter: 2018Q1

REPORT INFORMATION
  Report Type: Spontaneous
  Country: CN (occurrence: CN)
  Receive Date: 20180209
  Receipt Date: 20180326
  Transmission Date: 20180509
  Serious: Yes (Other)
  Sender: FDA-Public Use
  Company Number: CN-PFIZER INC-2018055431

PATIENT
  Age: 8 Year
  Sex: Female

DRUGS (2)
  1. LIPOSOMAL AMPHOTERICIN B [Concomitant]
     Active Substance: AMPHOTERICIN B
     Indication: ANTIFUNGAL TREATMENT
     Dosage: UNK (MORE THAN 2 WEEKS)
  2. METHOTREXATE SODIUM. [Suspect]
     Active Substance: METHOTREXATE SODIUM
     Indication: ACUTE LYMPHOCYTIC LEUKAEMIA
     Dosage: UNK (^BLOOK 1 REGIMEN 5G/M2 , 1/10 OF THE TOTAL DOSE WAS INFUSED WITHIN 0.5 HOURS REMAINING DOSE )
     Route: 042

REACTIONS (4)
  - Epilepsy [Recovered/Resolved]
  - Secondary hypertension [Recovered/Resolved]
  - Electrolyte imbalance [Recovered/Resolved]
  - Drug level increased [Unknown]
